FAERS Safety Report 9190227 (Version 1)
Quarter: 2013Q1

REPORT INFORMATION
  Report Type: Spontaneous
  Country: US (occurrence: None)
  Receive Date: 20120703
  Receipt Date: 20120703
  Transmission Date: 20140127
  Serious: Yes (Other)
  Sender: FDA-Public Use
  Company Number: PHEH2012US006480

PATIENT
  Age: 35 Year
  Sex: Female
  Weight: 93.4 kg

DRUGS (7)
  1. GILENYA [Suspect]
     Route: 048
  2. ALEVE [Concomitant]
  3. MAXZIDE [Concomitant]
  4. CALCIUM D-GLUCARATE (CALCIUM  SACCHARATE) [Concomitant]
  5. ALLEGRA [Concomitant]
  6. FERROUS SULFATE [Concomitant]
  7. LEVOTHYROXINE (LEVOTHYROXINE) [Concomitant]

REACTIONS (1)
  - Pneumonia [None]
